FAERS Safety Report 10905028 (Version 1)
Quarter: 2015Q1

REPORT INFORMATION
  Report Type: Spontaneous
  Country: US (occurrence: None)
  Receive Date: 20150304
  Receipt Date: 20150304
  Transmission Date: 20150721
  Serious: No
  Sender: FDA-Public Use
  Company Number: None

PATIENT
  Age: 68 Year
  Sex: Female
  Weight: 58.97 kg

DRUGS (12)
  1. RESVERATROL [Concomitant]
     Active Substance: RESVERATROL
  2. METOLAZONE. [Concomitant]
     Active Substance: METOLAZONE
  3. CENTRUM SENIOR FOR WOMEN [Concomitant]
  4. SCHIFF MOVE-FREE [Concomitant]
  5. METROGEL [Concomitant]
     Active Substance: METRONIDAZOLE
  6. TRIAMCINALONE [Concomitant]
     Active Substance: TRIAMCINOLONE
  7. CALCIUM CITRATE [Concomitant]
     Active Substance: CALCIUM CITRATE
  8. MIRVASO [Suspect]
     Active Substance: BRIMONIDINE TARTRATE
     Indication: ROSACEA
     Dosage: 1 PEA SIZED DOLLOP
     Route: 061
     Dates: start: 20140217, end: 20150228
  9. VITAMIN B COMPLEX [Concomitant]
     Active Substance: CYANOCOBALAMIN\DEXPANTHENOL\NIACINAMIDE\PYRIDOXINE HYDROCHLORIDE\RIBOFLAVIN 5^-PHOSPHATE SODIUM\THIAMINE HYDROCHLORIDE\VITAMIN B COMPLEX
  10. GRAPE SEED EXTRACT [Concomitant]
     Active Substance: GRAPE SEED EXTRACT
  11. PROBIOTICS [Concomitant]
     Active Substance: PROBIOTICS NOS
  12. POTASSIUM CHORIDE [Concomitant]

REACTIONS (8)
  - Social problem [None]
  - Rosacea [None]
  - Pain [None]
  - Deformity [None]
  - Rebound effect [None]
  - Sleep disorder due to general medical condition, insomnia type [None]
  - Erythema [None]
  - Impaired work ability [None]
